FAERS Safety Report 7370684-7 (Version None)
Quarter: 2011Q1

REPORT INFORMATION
  Report Type: 
  Country: None (occurrence: None)
  Receive Date: 20110323
  Receipt Date: 20110311
  Transmission Date: 20110831
  Serious: Yes (Other)
  Sender: FDA-Public Use
  Company Number: US-MYLANLABS-2011S1003422

PATIENT
  Age: 51 Year
  Sex: Female

DRUGS (1)
  1. LEVOTHYROXINE SODIUM [Suspect]
     Indication: HYPOTHYROIDISM
     Dosage: BEFORE THE FIRST MEAL
     Route: 048
     Dates: start: 20101218, end: 20110106

REACTIONS (9)
  - LOSS OF CONSCIOUSNESS [None]
  - GENERALISED OEDEMA [None]
  - TREMOR [None]
  - SYNCOPE [None]
  - DIZZINESS [None]
  - DYSPNOEA [None]
  - HEAD INJURY [None]
  - PALPITATIONS [None]
  - REACTION TO DRUG EXCIPIENTS [None]
